FAERS Safety Report 5902858-3 (Version None)
Quarter: 2008Q3

REPORT INFORMATION
  Report Type: 
  Country: None (occurrence: None)
  Receive Date: 20080929
  Receipt Date: 20080929
  Transmission Date: 20090109
  Serious: Yes (Hospitalization)
  Sender: FDA-Public Use
  Company Number: None

PATIENT
  Sex: Female
  Weight: 132.3 kg

DRUGS (7)
  1. DOXORUBICIN HYDROCHLORIDE [Suspect]
     Dosage: 90 MG
  2. TAXOL [Suspect]
     Dosage: 320 MG
  3. NEULASTA [Suspect]
     Dosage: 6 MG
  4. CISPLATIN [Suspect]
     Dosage: 100 MG
  5. ARIXTRA [Concomitant]
  6. AVALIDE [Concomitant]
  7. POTASSIUM CHLORIDW [Concomitant]

REACTIONS (15)
  - ANGIOGRAM ABNORMAL [None]
  - ANGIOGRAM PERIPHERAL ABNORMAL [None]
  - ARTERIAL DISORDER [None]
  - CATHETER RELATED COMPLICATION [None]
  - DEEP VEIN THROMBOSIS [None]
  - DYSPHAGIA [None]
  - DYSPHONIA [None]
  - DYSPNOEA [None]
  - INCREASED UPPER AIRWAY SECRETION [None]
  - JUGULAR VEIN THROMBOSIS [None]
  - LOCAL SWELLING [None]
  - PHARYNGEAL OEDEMA [None]
  - SENSATION OF PRESSURE [None]
  - SUPERIOR VENA CAVAL OCCLUSION [None]
  - VASCULAR OCCLUSION [None]
